FAERS Safety Report 4609501-4 (Version None)
Quarter: 2005Q1

REPORT INFORMATION
  Report Type: 
  Country: None (occurrence: None)
  Receive Date: 20050314
  Receipt Date: 20050314
  Transmission Date: 20050727
  Serious: Yes (Hospitalization)
  Sender: FDA-Public Use
  Company Number: None

PATIENT
  Age: 56 Year
  Sex: Male

DRUGS (3)
  1. CYCLOPHOSPHAMIDE [Suspect]
     Indication: NEOPLASM MALIGNANT
  2. FLUDARABINE PHOSPHATE [Suspect]
     Indication: NEOPLASM MALIGNANT
  3. RITUXIMAB [Suspect]
     Indication: NEOPLASM MALIGNANT

REACTIONS (1)
  - NEUTROPENIA [None]
